FAERS Safety Report 9789728 (Version 4)
Quarter: 2014Q1

REPORT INFORMATION
  Report Type: Spontaneous
  Country: IT (occurrence: None)
  Receive Date: 20131227
  Receipt Date: 20140218
  Transmission Date: 20141002
  Serious: Yes (Hospitalization)
  Sender: FDA-Public Use
  Company Number: AUR-APL-2013-10772

PATIENT
  Age: 93 Year
  Sex: Female

DRUGS (10)
  1. BISOPROLOL (BISOPROLOL) [Suspect]
     Indication: HYPERTENSION
     Route: 048
     Dates: end: 20131128
  2. CORDARONE (AMIODARONE HYDROCHLORIDE)/ORAL/TABLET/200 MILLIGRAMS(S) [Suspect]
     Indication: ATRIAL FIBRILLATION
     Route: 048
     Dates: start: 20130328, end: 20131128
  3. TALOFEN (PROMAZINE HYDROCHLORIDE) [Concomitant]
  4. LASIX (FUROSEMIDE) [Concomitant]
  5. CITALOPRAM  (CITALOPRAM) [Concomitant]
  6. QUETIAPINA (QUETIAPINE FUMARATE) [Concomitant]
  7. TICLOPIDINA (TICLOPIDINE HYDROCHLORIDE) [Concomitant]
  8. PERINDOPRIL (PERINDOPRIL) [Concomitant]
  9. BROMAZEPAM (BROMAZEPAM) [Concomitant]
  10. ATORVASTATINA (ATORVASTATIN CALCIUM) [Concomitant]

REACTIONS (5)
  - Dyspnoea [None]
  - Sopor [None]
  - Bradycardia [None]
  - Long QT syndrome [None]
  - Hypersensitivity [None]
